FAERS Safety Report 7321026-4 (Version None)
Quarter: 2011Q1

REPORT INFORMATION
  Report Type: 
  Country: None (occurrence: None)
  Receive Date: 20110228
  Receipt Date: 20110215
  Transmission Date: 20110831
  Serious: Yes (Death, Other)
  Sender: FDA-Public Use
  Company Number: DE-ROCHE-762059

PATIENT
  Sex: Female
  Weight: 60 kg

DRUGS (9)
  1. ALENDRONIC ACID [Concomitant]
     Indication: OSTEOPOROSIS
     Route: 048
  2. INSULIN [Concomitant]
     Indication: DIABETES MELLITUS
  3. GABAPENTIN [Concomitant]
     Indication: POLYNEUROPATHY
  4. ARAVA [Concomitant]
     Indication: RHEUMATOID ARTHRITIS
     Route: 048
  5. VIT. D [Concomitant]
     Indication: OSTEOPOROSIS
     Route: 048
  6. FENTANYL [Concomitant]
     Indication: RHEUMATOID ARTHRITIS
     Route: 048
  7. TOCILIZUMAB [Suspect]
     Indication: RHEUMATOID ARTHRITIS
     Route: 042
     Dates: start: 20100325, end: 20100525
  8. CALCIUM [Concomitant]
     Indication: OSTEOPOROSIS
     Route: 048
  9. URBASON [Concomitant]
     Indication: RHEUMATOID ARTHRITIS
     Route: 048

REACTIONS (2)
  - DEATH [None]
  - SURGERY [None]
